FAERS Safety Report 4927540-0 (Version None)
Quarter: 2006Q1

REPORT INFORMATION
  Report Type: 
  Country: None (occurrence: None)
  Receive Date: 20060228
  Receipt Date: 20060217
  Transmission Date: 20060701
  Serious: Yes (Hospitalization)
  Sender: FDA-Public Use
  Company Number: CH-ROCHE-436979

PATIENT
  Age: 43 Year
  Sex: Female
  Weight: 44 kg

DRUGS (7)
  1. CELLCEPT [Suspect]
     Indication: SYSTEMIC LUPUS ERYTHEMATOSUS
     Route: 048
     Dates: start: 20051215, end: 20060129
  2. CELLCEPT [Suspect]
     Route: 048
     Dates: start: 20060129
  3. RIFAMPICIN [Interacting]
     Indication: TUBERCULOSIS
     Route: 048
     Dates: start: 20051215
  4. TRAMAL [Concomitant]
     Dosage: 20 DROPS = 50 MG
     Route: 048
     Dates: start: 20051215
  5. PREDNISONE [Concomitant]
     Route: 048
     Dates: start: 20051215, end: 20060129
  6. PREDNISONE [Concomitant]
     Dates: start: 20060129
  7. FOSAMAX [Concomitant]
     Route: 048

REACTIONS (3)
  - ARTHRALGIA [None]
  - DRUG INTERACTION [None]
  - DRUG LEVEL DECREASED [None]
